FAERS Safety Report 7153098-4 (Version None)
Quarter: 2010Q4

REPORT INFORMATION
  Report Type: 
  Country: None (occurrence: None)
  Receive Date: 20101130
  Receipt Date: 20101115
  Transmission Date: 20110411
  Serious: Yes (Hospitalization, Other)
  Sender: FDA-Public Use
  Company Number: 022066

PATIENT
  Sex: Female
  Weight: 54.4 kg

DRUGS (13)
  1. CIMZIA [Suspect]
     Indication: CROHN'S DISEASE
     Dosage: (SUBCUTANEOUS)
     Route: 058
     Dates: start: 20090521
  2. PREDNISONE [Concomitant]
  3. OVCON-35 [Concomitant]
  4. CYMBALTA [Concomitant]
  5. KLONOPIN [Concomitant]
  6. LIDODERM [Concomitant]
  7. NEURONTIN [Concomitant]
  8. RESTORIL /00393701/ [Concomitant]
  9. TOPAMAX [Concomitant]
  10. ZINC [Concomitant]
  11. CENTRUM /00554501/ [Concomitant]
  12. NASCOBAL [Concomitant]
  13. PROPRANOLOL [Concomitant]

REACTIONS (4)
  - DEHYDRATION [None]
  - RENAL FAILURE [None]
  - SHORT-BOWEL SYNDROME [None]
  - WEIGHT DECREASED [None]
